FAERS Safety Report 8312329-5 (Version None)
Quarter: 2012Q2

REPORT INFORMATION
  Report Type: 
  Country: None (occurrence: None)
  Receive Date: 20120425
  Receipt Date: 20120419
  Transmission Date: 20120825
  Serious: Yes (Hospitalization)
  Sender: FDA-Public Use
  Company Number: US-AMGEN-USASP2012025420

PATIENT
  Age: 91 Year
  Sex: Female
  Weight: 59.41 kg

DRUGS (1)
  1. PROCRIT [Suspect]
     Indication: HAEMOGLOBIN DECREASED
     Dosage: UNK
     Dates: start: 20120301

REACTIONS (2)
  - BLOOD COUNT ABNORMAL [None]
  - HAEMOGLOBIN DECREASED [None]
